FAERS Safety Report 8956822 (Version 1)
Quarter: 2012Q4

REPORT INFORMATION
  Report Type: 
  Country: FR (occurrence: FR)
  Receive Date: 20121211
  Receipt Date: 20121211
  Transmission Date: 20130627
  Serious: Yes (Other)
  Sender: FDA-Public Use
  Company Number: PHHY2012FR110507

PATIENT
  Age: 34 Year
  Sex: Female

DRUGS (4)
  1. CALMIXENE [Suspect]
     Indication: COUGH
     Dosage: 45 ml, daily (15 ml in the morning, at noon and in the evening)
     Route: 048
     Dates: start: 20120930, end: 20121001
  2. AMOXICILLIN [Suspect]
     Indication: TONSILLITIS
     Dosage: 1 g, BID
     Route: 048
     Dates: start: 20120930
  3. SOLUMEDROL(METHYLPREDNISOLONE SODIUM SUCCINATE) INFUSION [Suspect]
     Indication: TONSILLITIS
     Dosage: 20 mg, UNK
     Route: 048
     Dates: start: 20120930
  4. PARACETAMOL [Suspect]
     Indication: TONSILLITIS
     Dosage: UNK UKN, UNK
     Route: 048
     Dates: start: 20120930

REACTIONS (6)
  - Thirst [Recovered/Resolved]
  - Tongue coated [Recovered/Resolved]
  - Expired drug administered [Recovered/Resolved]
  - Rash [Recovered/Resolved]
  - Generalised erythema [Recovered/Resolved]
  - Acne [Recovered/Resolved]
